FAERS Safety Report 5654775-4 (Version None)
Quarter: 2008Q1

REPORT INFORMATION
  Report Type: 
  Country: None (occurrence: None)
  Receive Date: 20080307
  Receipt Date: 20070907
  Transmission Date: 20080703
  Serious: No
  Sender: FDA-Public Use
  Company Number: A0655027A

PATIENT
  Age: 73 Year
  Sex: Male

DRUGS (10)
  1. REQUIP [Suspect]
     Indication: PARKINSON'S DISEASE
     Dosage: 3MG THREE TIMES PER DAY
     Route: 048
     Dates: start: 20060501
  2. SINEMET [Concomitant]
  3. AZILECT [Concomitant]
  4. LEVOTHYROXINE SODIUM [Concomitant]
  5. LOTREL [Concomitant]
  6. FUROSEMIDE [Concomitant]
  7. ASPIRIN [Concomitant]
  8. FINASTERIDE [Concomitant]
  9. TERAZOSIN HCL [Concomitant]
  10. SELEGILINE HCL [Concomitant]

REACTIONS (3)
  - EYE DISORDER [None]
  - RESTLESS LEGS SYNDROME [None]
  - VISUAL DISTURBANCE [None]
